FAERS Safety Report 12739079 (Version 1)
Quarter: 2016Q3

REPORT INFORMATION
  Report Type: Report from Study
  Country: CN (occurrence: CN)
  Receive Date: 20160912
  Receipt Date: 20160912
  Transmission Date: 20161109
  Serious: Yes (Hospitalization, Other)
  Sender: FDA-Public Use
  Company Number: CN-MYLANLABS-2016M1037459

PATIENT

DRUGS (3)
  1. FLUOROURACIL. [Suspect]
     Active Substance: FLUOROURACIL
     Indication: GESTATIONAL TROPHOBLASTIC TUMOUR
     Dosage: 26-28 MCG/KG IN 5% GLUCOSE (500 ML) FOR 6-8 DAYS
     Route: 042
  2. DACTINOMYCIN [Suspect]
     Active Substance: DACTINOMYCIN
     Indication: GESTATIONAL TROPHOBLASTIC TUMOUR
     Dosage: 6-8 MCG/KG IN 5% GLUCOSE, FOR 6-8 DAYS
     Route: 042
  3. GLUCOSE [Concomitant]
     Active Substance: DEXTROSE
     Indication: GESTATIONAL TROPHOBLASTIC TUMOUR
     Dosage: 5% GLUCOSE, 500 ML
     Route: 042

REACTIONS (3)
  - Septic shock [Recovered/Resolved]
  - Stomatitis [Recovered/Resolved]
  - Bone marrow failure [Recovered/Resolved]
